FAERS Safety Report 4932718-6 (Version None)
Quarter: 2006Q1

REPORT INFORMATION
  Report Type: 
  Country: None (occurrence: None)
  Receive Date: 20060301
  Receipt Date: 20060301
  Transmission Date: 20060701
  Serious: Yes (Hospitalization)
  Sender: FDA-Public Use
  Company Number: None

PATIENT
  Age: 91 Year
  Sex: Female

DRUGS (1)
  1. BACTRIM [Suspect]

REACTIONS (8)
  - ABDOMINAL PAIN [None]
  - HEPATIC CIRRHOSIS [None]
  - HEPATIC INFARCTION [None]
  - INTESTINAL ISCHAEMIA [None]
  - NAUSEA [None]
  - OESOPHAGEAL VARICES HAEMORRHAGE [None]
  - SPLENIC INFARCTION [None]
  - VOMITING [None]
